FAERS Safety Report 5254938-6 (Version None)
Quarter: 2007Q1

REPORT INFORMATION
  Report Type: 
  Country: None (occurrence: None)
  Receive Date: 20070302
  Receipt Date: 20070302
  Transmission Date: 20070707
  Serious: Yes (Other)
  Sender: FDA-Public Use
  Company Number: None

PATIENT
  Sex: Female
  Weight: 65.7716 kg

DRUGS (4)
  1. NORTRIPTYLINE HCL [Suspect]
     Indication: PAIN
     Dosage: 25 - 50 MG 1 @ NIGHT PO
     Route: 048
     Dates: start: 20070220, end: 20070222
  2. NORTRIPTYLINE HCL [Suspect]
     Indication: PANCREATITIS CHRONIC
     Dosage: 25 - 50 MG 1 @ NIGHT PO
     Route: 048
     Dates: start: 20070220, end: 20070222
  3. LEXAPRO [Suspect]
  4. VIVACTIL [Suspect]

REACTIONS (6)
  - ABNORMAL BEHAVIOUR [None]
  - ANGER [None]
  - DEPRESSION [None]
  - DRUG INTERACTION [None]
  - EMOTIONAL DISORDER [None]
  - SUICIDAL IDEATION [None]
